FAERS Safety Report 19068346 (Version 2)
Quarter: 2021Q2

REPORT INFORMATION
  Report Type: Spontaneous
  Country: EG (occurrence: EG)
  Receive Date: 20210329
  Receipt Date: 20210419
  Transmission Date: 20210717
  Serious: Yes (Hospitalization, Other)
  Sender: FDA-Public Use
  Company Number: EG-PFIZER INC-2021281405

PATIENT
  Age: 46 Year
  Sex: Male

DRUGS (3)
  1. VANCOMYCIN HCL [Suspect]
     Active Substance: VANCOMYCIN HYDROCHLORIDE
     Dosage: 1 G, 2X/DAY (EVERY 12 HOURS)
     Route: 041
     Dates: start: 20201216, end: 20201216
  2. MERONEM [Concomitant]
     Active Substance: MEROPENEM
     Indication: ANTIBIOTIC THERAPY
     Dosage: 500 MG EVERY 8?HOUR
     Route: 042
     Dates: start: 20201129
  3. TAVANIC [Concomitant]
     Active Substance: LEVOFLOXACIN
     Indication: ANTIBIOTIC THERAPY
     Dosage: 750 MG, 1X/DAY
     Route: 042
     Dates: start: 20201129

REACTIONS (2)
  - Incorrect drug administration rate [Unknown]
  - Red man syndrome [Recovered/Resolved]

NARRATIVE: CASE EVENT DATE: 20201216
